FAERS Safety Report 5967756-8 (Version None)
Quarter: 2008Q4

REPORT INFORMATION
  Report Type: 
  Country: None (occurrence: None)
  Receive Date: 20081126
  Receipt Date: 20081118
  Transmission Date: 20090506
  Serious: Yes (Hospitalization)
  Sender: FDA-Public Use
  Company Number: US-JNJFOC-20081104426

PATIENT
  Age: 22 Year
  Sex: Male
  Weight: 112.49 kg

DRUGS (2)
  1. RISPERIDONE [Suspect]
     Indication: SCHIZOPHRENIA
     Route: 030
  2. ZYPREXA [Concomitant]
     Indication: SCHIZOPHRENIA, PARANOID TYPE

REACTIONS (1)
  - AGGRESSION [None]
